FAERS Safety Report 21565889 (Version 1)
Quarter: 2022Q4

REPORT INFORMATION
  Report Type: Report from Study
  Country: CA (occurrence: CA)
  Receive Date: 20221108
  Receipt Date: 20221108
  Transmission Date: 20230113
  Serious: Yes (Other)
  Sender: FDA-Public Use
  Company Number: CA-002147023-NVSC2022CA247657

PATIENT
  Sex: Male

DRUGS (1)
  1. HYRIMOZ [Suspect]
     Active Substance: ADALIMUMAB-ADAZ
     Indication: Hidradenitis
     Dosage: 50 MG
     Route: 058
     Dates: start: 20220809, end: 20220919

REACTIONS (8)
  - Colitis ulcerative [Unknown]
  - Acne [Unknown]
  - Back pain [Unknown]
  - Headache [Unknown]
  - Nausea [Unknown]
  - Hidradenitis [Unknown]
  - Condition aggravated [Unknown]
  - Drug ineffective [Unknown]
